FAERS Safety Report 24107199 (Version 2)
Quarter: 2024Q3

REPORT INFORMATION
  Report Type: Spontaneous
  Country: KZ (occurrence: KZ)
  Receive Date: 20240718
  Receipt Date: 20240812
  Transmission Date: 20241017
  Serious: Yes (Other)
  Sender: HETERO
  Company Number: KZ-HETERO-HET2024KZ02248

PATIENT
  Sex: Male

DRUGS (2)
  1. EFAVIRENZ\EMTRICITABINE\TENOFOVIR DISOPROXIL FUMARATE [Suspect]
     Active Substance: EFAVIRENZ\EMTRICITABINE\TENOFOVIR DISOPROXIL FUMARATE
     Indication: HIV infection WHO clinical stage II
     Dosage: UNK
     Route: 065
     Dates: start: 20210802, end: 20240212
  2. EFAVIRENZ\EMTRICITABINE\TENOFOVIR DISOPROXIL FUMARATE [Suspect]
     Active Substance: EFAVIRENZ\EMTRICITABINE\TENOFOVIR DISOPROXIL FUMARATE
     Indication: Angular cheilitis

REACTIONS (2)
  - Poisoning [Recovering/Resolving]
  - Dizziness [Recovering/Resolving]
